FAERS Safety Report 14764405 (Version 1)
Quarter: 2018Q2

REPORT INFORMATION
  Report Type: Report from Study
  Country: IL (occurrence: IL)
  Receive Date: 20180416
  Receipt Date: 20180416
  Transmission Date: 20180711
  Serious: Yes (Other)
  Sender: FDA-Public Use
  Company Number: IL-AMGEN-ISRSL2018049984

PATIENT
  Age: 70 Year
  Sex: Female

DRUGS (4)
  1. OMEPRADEX [Concomitant]
     Active Substance: OMEPRAZOLE
  2. LIPITOR [Concomitant]
     Active Substance: ATORVASTATIN CALCIUM
  3. CONCOR [Concomitant]
     Active Substance: BISOPROLOL FUMARATE
  4. PROLIA [Suspect]
     Active Substance: DENOSUMAB
     Indication: PRODUCT USED FOR UNKNOWN INDICATION
     Dosage: UNK
     Route: 065

REACTIONS (5)
  - Neoplasm malignant [Unknown]
  - Chronic kidney disease [Unknown]
  - Autoimmune disorder [Unknown]
  - Pruritus generalised [Unknown]
  - Myocardial infarction [Unknown]

NARRATIVE: CASE EVENT DATE: 20180404
